FAERS Safety Report 4786919-0 (Version None)
Quarter: 2005Q4

REPORT INFORMATION
  Report Type: 
  Country: None (occurrence: None)
  Receive Date: 20051004
  Receipt Date: 20050927
  Transmission Date: 20060501
  Serious: Yes (Death, Other)
  Sender: FDA-Public Use
  Company Number: US-BRISTOL-MYERS SQUIBB COMPANY-13124060

PATIENT
  Sex: Female

DRUGS (1)
  1. ERBITUX [Suspect]
     Route: 042

REACTIONS (3)
  - DEATH [None]
  - FALL [None]
  - FRACTURE [None]
